FAERS Safety Report 25129117 (Version 1)
Quarter: 2025Q1

REPORT INFORMATION
  Report Type: Spontaneous
  Country: US (occurrence: US)
  Receive Date: 20250327
  Receipt Date: 20250327
  Transmission Date: 20250409
  Serious: No
  Sender: ANI
  Company Number: US-ANIPHARMA-2024-US-063843

PATIENT
  Age: 53 Year
  Sex: Female

DRUGS (3)
  1. CORTICOTROPIN [Suspect]
     Active Substance: CORTICOTROPIN
     Indication: Parophthalmia
     Route: 058
  2. LORATADINE [Concomitant]
     Active Substance: LORATADINE
  3. ASHWAGANDHA GUMMIES [Concomitant]

REACTIONS (1)
  - Nausea [Unknown]
